FAERS Safety Report 19032094 (Version 1)
Quarter: 2021Q1

REPORT INFORMATION
  Report Type: Other
  Country: MY (occurrence: MY)
  Receive Date: 20210319
  Receipt Date: 20210319
  Transmission Date: 20210420
  Serious: Yes (Other)
  Sender: FDA-Public Use
  Company Number: MY-ROCHE-2791417

PATIENT
  Age: 65 Year
  Sex: Female

DRUGS (1)
  1. RITUXIMAB. [Suspect]
     Active Substance: RITUXIMAB
     Indication: EOSINOPHILIC GRANULOMATOSIS WITH POLYANGIITIS
     Dosage: 4 CYCLES, LAST DOSE WAS GIVEN ON 17/MAR/2020
     Route: 042

REACTIONS (1)
  - Pneumonitis [Unknown]
